FAERS Safety Report 7688752-9 (Version None)
Quarter: 2011Q3

REPORT INFORMATION
  Report Type: 
  Country: None (occurrence: None)
  Receive Date: 20110811
  Receipt Date: 20110727
  Transmission Date: 20111222
  Serious: Yes (Other)
  Sender: FDA-Public Use
  Company Number: TPA2011A04463

PATIENT
  Age: 72 Year
  Sex: Female
  Weight: 108.8633 kg

DRUGS (1)
  1. ACTOS [Suspect]
     Indication: TYPE 2 DIABETES MELLITUS
     Dosage: 30 MG, 1 IN 1 D, PER ORAL
     Route: 048
     Dates: end: 20110401

REACTIONS (4)
  - ARTHROPATHY [None]
  - WEIGHT INCREASED [None]
  - DRUG INEFFECTIVE [None]
  - BLOOD GLUCOSE INCREASED [None]
